FAERS Safety Report 5070321-0 (Version None)
Quarter: 2006Q3

REPORT INFORMATION
  Report Type: 
  Country: None (occurrence: None)
  Receive Date: 20060802
  Receipt Date: 20060317
  Transmission Date: 20061208
  Serious: Yes (Hospitalization)
  Sender: FDA-Public Use
  Company Number: OMPQ-NO-0603S-0177

PATIENT
  Age: 62 Year
  Sex: Male

DRUGS (1)
  1. OMNIPAQUE 140 [Suspect]
     Indication: DRUG USE FOR UNKNOWN INDICATION
     Dosage: 50 ML (SINGLE DOSE) EXTRAVASATION
     Dates: start: 20060112, end: 20060112

REACTIONS (5)
  - BLISTER [None]
  - COMPARTMENT SYNDROME [None]
  - INJECTION SITE EXTRAVASATION [None]
  - SKIN DISCOLOURATION [None]
  - SWELLING [None]
